FAERS Safety Report 4640356-8 (Version None)
Quarter: 2005Q2

REPORT INFORMATION
  Report Type: 
  Country: None (occurrence: None)
  Receive Date: 20050420
  Receipt Date: 20040727
  Transmission Date: 20051028
  Serious: Yes (Hospitalization)
  Sender: FDA-Public Use
  Company Number: 04-07-1026

PATIENT
  Age: 48 Year
  Sex: Female

DRUGS (2)
  1. LITHIUM CARBONATE [Suspect]
     Indication: DRUG USE FOR UNKNOWN INDICATION
     Route: 048
  2. CLOZAPINE [Suspect]
     Dosage: 250MG PER DAY
     Route: 048
     Dates: start: 20030401

REACTIONS (2)
  - DISORIENTATION [None]
  - DIZZINESS [None]
